FAERS Safety Report 4994226-6 (Version None)
Quarter: 2006Q2

REPORT INFORMATION
  Report Type: 
  Country: None (occurrence: None)
  Receive Date: 20060503
  Receipt Date: 20060417
  Transmission Date: 20061013
  Serious: Yes (Disabling)
  Sender: FDA-Public Use
  Company Number: RS005177-USA

PATIENT
  Age: 52 Year
  Sex: Male

DRUGS (1)
  1. ACIPHEX [Suspect]
     Indication: GASTROOESOPHAGEAL REFLUX DISEASE
     Dosage: 20 MG, UNKNOWN, ORAL
     Route: 048
     Dates: start: 20010101

REACTIONS (2)
  - NEUROPATHY PERIPHERAL [None]
  - VITAMIN B12 DEFICIENCY [None]
